FAERS Safety Report 24859497 (Version 2)
Quarter: 2025Q1

REPORT INFORMATION
  Report Type: Spontaneous
  Country: US (occurrence: US)
  Receive Date: 20250119
  Receipt Date: 20250121
  Transmission Date: 20250409
  Serious: Yes (Death, Life-Threatening, Hospitalization, Other)
  Sender: Kenvue
  Company Number: US-JNTL CONSUMER HEALTH MIDDLE EAST FZ-LLC-20250102498

PATIENT
  Age: 23 Year
  Sex: Female

DRUGS (4)
  1. ACETAMINOPHEN [Suspect]
     Active Substance: ACETAMINOPHEN
     Indication: Suicide attempt
     Route: 048
  2. IBUPROFEN [Suspect]
     Active Substance: IBUPROFEN
     Indication: Suicide attempt
     Route: 048
  3. ISOPROPANOLAMINE [Suspect]
     Active Substance: ISOPROPANOLAMINE
     Indication: Suicide attempt
     Route: 048
  4. BLACK PEPPER [Suspect]
     Active Substance: BLACK PEPPER
     Indication: Suicide attempt
     Route: 048

REACTIONS (20)
  - Toxicity to various agents [Fatal]
  - Exposure during pregnancy [Fatal]
  - Lethargy [Fatal]
  - Mental status changes [Fatal]
  - Unresponsive to stimuli [Fatal]
  - Aspiration [Fatal]
  - Acidosis [Fatal]
  - Septic shock [Fatal]
  - Troponin increased [Fatal]
  - Cytokine increased [Fatal]
  - Cardiac output decreased [Fatal]
  - Seizure [Fatal]
  - Hypotension [Fatal]
  - Abortion spontaneous [Fatal]
  - Coagulopathy [Fatal]
  - Oxygen saturation decreased [Fatal]
  - Blood lactic acid increased [Fatal]
  - Vomiting [Fatal]
  - Aspartate aminotransferase increased [Fatal]
  - Alanine aminotransferase increased [Fatal]
